FAERS Safety Report 17441927 (Version 1)
Quarter: 2020Q1

REPORT INFORMATION
  Report Type: Spontaneous
  Country: US (occurrence: US)
  Receive Date: 20200220
  Receipt Date: 20200220
  Transmission Date: 20200409
  Serious: No
  Sender: FDA-Public Use
  Company Number: US-BAUSCH-BL-2020-003878

PATIENT

DRUGS (1)
  1. LUMIFY [Suspect]
     Active Substance: BRIMONIDINE TARTRATE
     Indication: OCULAR HYPERAEMIA
     Route: 065

REACTIONS (5)
  - Inappropriate schedule of product administration [Unknown]
  - Somnolence [Unknown]
  - Fatigue [Unknown]
  - Foreign body sensation in eyes [Unknown]
  - Eye irritation [Unknown]

NARRATIVE: CASE EVENT DATE: 20191015
